FAERS Safety Report 23916378 (Version 3)
Quarter: 2025Q1

REPORT INFORMATION
  Report Type: Spontaneous
  Country: US (occurrence: US)
  Receive Date: 20240529
  Receipt Date: 20250108
  Transmission Date: 20250409
  Serious: No
  Sender: SANOFI AVENTIS
  Company Number: US-SA-SAC20240527000115

PATIENT
  Age: 55 Year
  Sex: Female
  Weight: 60 kg

DRUGS (12)
  1. DUPIXENT [Suspect]
     Active Substance: DUPILUMAB
     Indication: Dermatitis atopic
     Dosage: 300 MG, QOW
     Route: 058
  2. GRANIX [Concomitant]
     Active Substance: TBO-FILGRASTIM
  3. DOXYCYCLINE [Concomitant]
     Active Substance: DOXYCYCLINE
  4. SUMATRIPTAN SUCCINATE [Concomitant]
     Active Substance: SUMATRIPTAN SUCCINATE
  5. PREDNISOLONE ACETATE [Concomitant]
     Active Substance: PREDNISOLONE ACETATE
  6. XARELTO [Concomitant]
     Active Substance: RIVAROXABAN
  7. ESTRADIOL [Concomitant]
     Active Substance: ESTRADIOL
  8. ACYCLOVIR [Concomitant]
     Active Substance: ACYCLOVIR
  9. OMEPRAZOLE [Concomitant]
     Active Substance: OMEPRAZOLE
  10. DOXYCYCLINE HYCLATE [Concomitant]
     Active Substance: DOXYCYCLINE HYCLATE
  11. POMALYST [Concomitant]
     Active Substance: POMALIDOMIDE
  12. METHYLPREDNISOLONE [Concomitant]
     Active Substance: METHYLPREDNISOLONE

REACTIONS (3)
  - Bronchitis [Recovering/Resolving]
  - Illness [Recovering/Resolving]
  - Migraine [Recovered/Resolved]

NARRATIVE: CASE EVENT DATE: 20240101
